FAERS Safety Report 4662874-9 (Version None)
Quarter: 2005Q2

REPORT INFORMATION
  Report Type: 
  Country: None (occurrence: None)
  Receive Date: 20050502
  Receipt Date: 20050308
  Transmission Date: 20051028
  Serious: No
  Sender: FDA-Public Use
  Company Number: 200510933US

PATIENT
  Age: 27 Year
  Sex: Female
  Weight: 64.5 kg

DRUGS (6)
  1. KETEK [Suspect]
     Indication: PHARYNGITIS STREPTOCOCCAL
     Dosage: 800 MG QD PO
     Route: 048
     Dates: start: 20050201, end: 20050203
  2. PSEUDOEPHEDRINE SULFATE [Concomitant]
  3. LORATADINE (CLARITIN-D) [Concomitant]
  4. IBUPROFEN [Concomitant]
  5. CLAVULANATE POTASSIUM [Concomitant]
  6. AMOXICILLIN TRIHYDRATE (AUGMENTIN) [Concomitant]

REACTIONS (7)
  - DIARRHOEA [None]
  - DIPLOPIA [None]
  - DIZZINESS [None]
  - NAUSEA [None]
  - SOMNOLENCE [None]
  - VISION BLURRED [None]
  - VOMITING [None]
